FAERS Safety Report 8383437-8 (Version None)
Quarter: 2012Q2

REPORT INFORMATION
  Report Type: 
  Country: None (occurrence: None)
  Receive Date: 20120524
  Receipt Date: 20120516
  Transmission Date: 20120825
  Serious: Yes (Hospitalization)
  Sender: FDA-Public Use
  Company Number: PHEH2012US010434

PATIENT
  Sex: Female
  Weight: 113.38 kg

DRUGS (14)
  1. PRADAXA [Concomitant]
     Dosage: 1 DF,
  2. NITROSTAT [Concomitant]
     Route: 048
  3. COLACE [Concomitant]
     Route: 048
  4. PROTONIX [Concomitant]
     Dosage: 20 MG,
     Route: 048
  5. SPIRIVA [Concomitant]
  6. TASIGNA [Suspect]
     Dosage: 400 MG, BID
     Route: 048
  7. POTASSIUM CHLORIDE [Concomitant]
     Dosage: 1 DF,
  8. LASIX [Concomitant]
     Dosage: 1 DF,
     Route: 048
  9. CELEXA [Concomitant]
     Route: 048
  10. MYLANTA [Concomitant]
     Route: 048
  11. MIRALAX [Concomitant]
  12. CARDIZEM LA [Concomitant]
     Dosage: 1 DF,
     Route: 048
  13. TYLENOL [Concomitant]
  14. PERCOCET [Concomitant]
     Route: 048

REACTIONS (1)
  - ATRIAL FIBRILLATION [None]
